FAERS Safety Report 5119526-0 (Version None)
Quarter: 2006Q4

REPORT INFORMATION
  Report Type: 
  Country: None (occurrence: None)
  Receive Date: 20061003
  Receipt Date: 20060608
  Transmission Date: 20070319
  Serious: Yes (Hospitalization)
  Sender: FDA-Public Use
  Company Number: BE-BRISTOL-MYERS SQUIBB COMPANY-13405089

PATIENT
  Age: 65 Year
  Sex: Male
  Weight: 98 kg

DRUGS (17)
  1. CISPLATIN [Suspect]
     Indication: SMALL CELL LUNG CANCER STAGE UNSPECIFIED
     Route: 042
     Dates: start: 20060508, end: 20060508
  2. IRINOTECAN HCL [Suspect]
     Indication: SMALL CELL LUNG CANCER STAGE UNSPECIFIED
     Route: 042
     Dates: start: 20060516, end: 20060516
  3. PANTOPRAZOLE SODIUM [Concomitant]
     Route: 048
     Dates: start: 20001212
  4. HALDOL SOLUTAB [Concomitant]
     Route: 048
     Dates: start: 20040801
  5. ZYPREXA [Concomitant]
     Route: 048
     Dates: start: 20040901
  6. ENTUMINE [Concomitant]
     Route: 048
     Dates: start: 20040901
  7. DURAGESIC-100 [Concomitant]
     Route: 062
     Dates: start: 20060412
  8. MORPHINE [Concomitant]
     Route: 048
     Dates: start: 20060412
  9. COMBIVENT [Concomitant]
     Route: 055
     Dates: start: 20040901
  10. MEDROL [Concomitant]
     Route: 048
     Dates: start: 20060412
  11. ALPRAZOLAM [Concomitant]
     Route: 048
     Dates: start: 20060412
  12. SOFTENE [Concomitant]
     Route: 048
     Dates: start: 20060412
  13. TRAMADOL HCL [Concomitant]
     Route: 048
     Dates: start: 20060412
  14. PANADOL [Concomitant]
     Route: 048
     Dates: start: 20060301
  15. PROTHIPENDYL [Concomitant]
     Route: 048
     Dates: start: 19960101
  16. DOMPERIDONE [Concomitant]
     Route: 048
     Dates: start: 20060412
  17. MOVICOL [Concomitant]
     Route: 048
     Dates: start: 20060501

REACTIONS (3)
  - DEHYDRATION [None]
  - DIARRHOEA [None]
  - RENAL FAILURE [None]
